FAERS Safety Report 19095322 (Version 1)
Quarter: 2021Q2

REPORT INFORMATION
  Report Type: Spontaneous
  Country: DE (occurrence: DE)
  Receive Date: 20210406
  Receipt Date: 20210406
  Transmission Date: 20210717
  Serious: Yes (Hospitalization, Other)
  Sender: FDA-Public Use
  Company Number: DE-GLENMARK PHARMACEUTICALS-2021GMK053158

PATIENT
  Age: 62 Year
  Sex: Female
  Weight: 65 kg

DRUGS (11)
  1. PRAMIPEXOLE DIHYDROCHLORIDE. [Suspect]
     Active Substance: PRAMIPEXOLE DIHYDROCHLORIDE
     Indication: PARKINSON^S DISEASE
     Dosage: 0.525 MILLIGRAM, QD
     Route: 065
  2. MOCLOBEMIDE [Interacting]
     Active Substance: MOCLOBEMIDE
     Indication: PARKINSON^S DISEASE
     Dosage: 150 MILLIGRAM, QD (ABOUT 1 YEAR)
     Route: 065
  3. AGOMELATINE [Suspect]
     Active Substance: AGOMELATINE
     Indication: INSOMNIA
     Dosage: 50 MILLIGRAM, QD
     Route: 065
  4. PRAMIPEXOLE DIHYDROCHLORIDE. [Suspect]
     Active Substance: PRAMIPEXOLE DIHYDROCHLORIDE
     Dosage: UNK (DOSE REDUCED)
     Route: 065
  5. TRAZODONE HYDROCHLORIDE. [Suspect]
     Active Substance: TRAZODONE HYDROCHLORIDE
     Indication: INSOMNIA
     Dosage: UNK
     Route: 065
  6. L?DOPA+BENSERAZIDE [Suspect]
     Active Substance: BENSERAZIDE\LEVODOPA
     Indication: PARKINSON^S DISEASE
     Dosage: 200+50MG, QD
     Route: 065
  7. MOCLOBEMIDE [Interacting]
     Active Substance: MOCLOBEMIDE
     Dosage: 450 MILLIGRAM, QD
     Route: 065
  8. RANOLAZINE. [Suspect]
     Active Substance: RANOLAZINE
     Dosage: 375 MILLIGRAM, QD
     Route: 065
  9. L?THYROXINE [LEVOTHYROXINE] [Concomitant]
     Active Substance: LEVOTHYROXINE
     Indication: PRODUCT USED FOR UNKNOWN INDICATION
     Dosage: 100 MICROGRAM, QD
     Route: 065
  10. RANOLAZINE. [Suspect]
     Active Substance: RANOLAZINE
     Indication: HYPERTENSION
     Dosage: UNK
     Route: 065
  11. RASAGALINE [Interacting]
     Active Substance: RASAGILINE
     Indication: PARKINSON^S DISEASE
     Dosage: 1 MILLIGRAM, QD
     Route: 065

REACTIONS (6)
  - Drug interaction [Recovered/Resolved]
  - Condition aggravated [Recovered/Resolved]
  - Serotonin syndrome [Recovered/Resolved]
  - Serum serotonin increased [Recovered/Resolved]
  - Drug ineffective for unapproved indication [Unknown]
  - Autonomic nervous system imbalance [Recovered/Resolved]
